FAERS Safety Report 7361805-0 (Version None)
Quarter: 2011Q1

REPORT INFORMATION
  Report Type: 
  Country: None (occurrence: None)
  Receive Date: 20110318
  Receipt Date: 20080818
  Transmission Date: 20110831
  Serious: Yes (Other)
  Sender: FDA-Public Use
  Company Number: FR-CELGENEUS-056-20785-10102737

PATIENT
  Sex: Male

DRUGS (4)
  1. THALIDOMIDE [Suspect]
     Indication: MULTIPLE MYELOMA
     Dosage: 100 MILLIGRAM
     Route: 048
     Dates: start: 20060415
  2. BISPHOSPHONATES [Concomitant]
     Route: 065
  3. THALIDOMIDE [Suspect]
     Dosage: 50 MILLIGRAM
     Route: 048
     Dates: start: 20060815, end: 20070115
  4. ASPIRIN [Concomitant]
     Indication: THROMBOSIS
     Route: 065

REACTIONS (1)
  - HEPATOTOXICITY [None]
